FAERS Safety Report 7952510-8 (Version None)
Quarter: 2011Q4

REPORT INFORMATION
  Report Type: 
  Country: None (occurrence: None)
  Receive Date: 20111201
  Receipt Date: 20111124
  Transmission Date: 20120403
  Serious: Yes (Hospitalization, Other)
  Sender: FDA-Public Use
  Company Number: JP-PFIZER INC-2011117597

PATIENT
  Age: 59 Year
  Sex: Male

DRUGS (7)
  1. URSO 250 [Concomitant]
     Dosage: UNK
  2. RABEPRAZOLE SODIUM [Concomitant]
     Dosage: UNK
  3. ZYVOX [Suspect]
     Indication: SEPTIC ARTHRITIS STAPHYLOCOCCAL
     Dosage: 1200 MG, 1X/DAY
     Route: 048
     Dates: start: 20110519, end: 20110525
  4. JANUVIA [Concomitant]
     Dosage: UNK
  5. AMLODIPINE [Concomitant]
     Dosage: UNK
  6. ZYVOX [Suspect]
     Dosage: 1200 MG/DAY
     Route: 048
     Dates: start: 20110818, end: 20111026
  7. ALOSENN [Concomitant]
     Dosage: UNK

REACTIONS (4)
  - ANAEMIA [None]
  - NEUROPATHY PERIPHERAL [None]
  - OPTIC NEURITIS [None]
  - HEPATITIS [None]
